FAERS Safety Report 8836064 (Version 1)
Quarter: 2012Q4

REPORT INFORMATION
  Report Type: 
  Country: US (occurrence: US)
  Receive Date: 20121011
  Receipt Date: 20121011
  Transmission Date: 20130627
  Serious: No
  Sender: FDA-Public Use
  Company Number: US-009507513-1210USA001212

PATIENT

DRUGS (2)
  1. AZASITE [Suspect]
     Dosage: UNK
     Dates: start: 20110820
  2. AZASITE [Suspect]
     Dosage: 2 DF, qd
     Route: 047
     Dates: start: 20120908

REACTIONS (3)
  - Drug ineffective [Unknown]
  - Product packaging quantity issue [Unknown]
  - Inappropriate schedule of drug administration [Unknown]
